FAERS Safety Report 21923477 (Version 1)
Quarter: 2023Q1

REPORT INFORMATION
  Report Type: Spontaneous
  Country: FR (occurrence: FR)
  Receive Date: 20230130
  Receipt Date: 20230130
  Transmission Date: 20230417
  Serious: Yes (Other)
  Sender: FDA-Public Use
  Company Number: FR-AFSSAPS-RE20191512

PATIENT
  Age: 24 Year
  Sex: Female
  Weight: 46 kg

DRUGS (18)
  1. BETAMETHASONE [Suspect]
     Active Substance: BETAMETHASONE
     Indication: Drug reaction with eosinophilia and systemic symptoms
     Dosage: UNK
     Route: 003
     Dates: start: 20190809, end: 20190821
  2. BETAMETHASONE [Suspect]
     Active Substance: BETAMETHASONE
     Dosage: UNK
     Route: 003
     Dates: start: 20191101, end: 20191115
  3. BETAMETHASONE [Suspect]
     Active Substance: BETAMETHASONE
     Dosage: UNK
     Route: 003
     Dates: start: 20190924, end: 20191003
  4. BETAMETHASONE [Suspect]
     Active Substance: BETAMETHASONE
     Dosage: UNK
     Route: 003
     Dates: start: 20191004, end: 20191015
  5. BETAMETHASONE [Suspect]
     Active Substance: BETAMETHASONE
     Dosage: UNK
     Route: 003
     Dates: start: 20191016, end: 20191031
  6. BETAMETHASONE [Suspect]
     Active Substance: BETAMETHASONE
     Dosage: UNK
     Route: 003
     Dates: start: 20190822, end: 20190923
  7. PREDNISONE [Suspect]
     Active Substance: PREDNISONE
     Indication: Drug reaction with eosinophilia and systemic symptoms
     Dosage: 45 MILLIGRAM, ONCE A DAY
     Route: 048
     Dates: start: 20190809
  8. PREDNISONE [Suspect]
     Active Substance: PREDNISONE
     Dosage: 40 MILLIGRAM, ONCE A DAY
     Route: 048
     Dates: start: 20190924, end: 20191003
  9. PREDNISONE [Suspect]
     Active Substance: PREDNISONE
     Dosage: 50 MILLIGRAM, ONCE A DAY
     Route: 048
     Dates: start: 20190809, end: 20190821
  10. PREDNISONE [Suspect]
     Active Substance: PREDNISONE
     Dosage: 35 MILLIGRAM, ONCE A DAY
     Route: 048
     Dates: start: 20191004, end: 20191015
  11. PREDNISONE [Suspect]
     Active Substance: PREDNISONE
     Dosage: 30 MILLIGRAM, ONCE A DAY
     Route: 048
     Dates: start: 20191016, end: 20191031
  12. PREDNISONE [Suspect]
     Active Substance: PREDNISONE
     Dosage: 25 MILLIGRAM, ONCE A DAY
     Route: 048
     Dates: start: 20191101, end: 20191115
  13. PREDNISONE [Suspect]
     Active Substance: PREDNISONE
     Dosage: 45 MILLIGRAM, ONCE A DAY
     Route: 048
     Dates: start: 20190822, end: 20190923
  14. BETAMETHASONE VALERATE [Suspect]
     Active Substance: BETAMETHASONE VALERATE
     Indication: Drug reaction with eosinophilia and systemic symptoms
     Dosage: UNK
     Route: 003
     Dates: start: 20190723, end: 20190808
  15. PREDNISONE [Suspect]
     Active Substance: PREDNISONE
     Indication: Drug reaction with eosinophilia and systemic symptoms
     Dosage: 50 MILLIGRAM, ONCE A DAY
     Route: 048
     Dates: start: 20190723, end: 20190808
  16. CLOBETASOL PROPIONATE [Suspect]
     Active Substance: CLOBETASOL PROPIONATE
     Indication: Drug reaction with eosinophilia and systemic symptoms
     Dosage: UNK
     Route: 003
     Dates: start: 20190726, end: 20190731
  17. METHYLPREDNISOLONE [Suspect]
     Active Substance: METHYLPREDNISOLONE
     Indication: Drug reaction with eosinophilia and systemic symptoms
     Dosage: 500 MILLIGRAM, ONCE A DAY
     Route: 042
     Dates: start: 20190725, end: 20190727
  18. PHENOBARBITAL [Suspect]
     Active Substance: PHENOBARBITAL
     Indication: Product used for unknown indication
     Dosage: UNK
     Route: 065

REACTIONS (2)
  - Hirsutism [Not Recovered/Not Resolved]
  - Steroid diabetes [Not Recovered/Not Resolved]

NARRATIVE: CASE EVENT DATE: 20180913
